FAERS Safety Report 21818654 (Version 4)
Quarter: 2023Q1

REPORT INFORMATION
  Report Type: Spontaneous
  Country: DE (occurrence: DE)
  Receive Date: 20230104
  Receipt Date: 20230119
  Transmission Date: 20230418
  Serious: Yes (Hospitalization, Other)
  Sender: FDA-Public Use
  Company Number: DE-TAKEDA-2022TUS083111

PATIENT
  Age: 44 Year
  Sex: Male

DRUGS (8)
  1. TAMSULOSIN [Suspect]
     Active Substance: TAMSULOSIN
     Indication: Benign prostatic hyperplasia
     Dosage: 0.4 MILLIGRAM, 0.4 MG, UNKNOWN FREQUENCY
     Route: 048
     Dates: start: 20221029, end: 20221029
  2. DEXAMETHASONE [Suspect]
     Active Substance: DEXAMETHASONE
     Indication: Prophylaxis
     Dosage: 2 MILLIGRAM, 2 MG (UNKNOWN FREQUENCY)
     Route: 065
     Dates: start: 202208, end: 20221029
  3. IBUPROFEN [Suspect]
     Active Substance: IBUPROFEN
     Indication: Pain prophylaxis
     Dosage: 400 MILLIGRAM. 400 MG (UNKNOWN FREQUENCY)
     Route: 048
     Dates: end: 2022
  4. PANTOPRAZOLE [Suspect]
     Active Substance: PANTOPRAZOLE
     Indication: Prophylaxis against gastrointestinal ulcer
     Dosage: 40 MILLIGRAM
     Route: 048
     Dates: start: 2022, end: 20221029
  5. BRIVIACT [Suspect]
     Active Substance: BRIVARACETAM
     Indication: Symptomatic treatment
     Dosage: 50 MILLIGRAM
     Route: 065
     Dates: start: 202210, end: 20221029
  6. BRIVIACT [Suspect]
     Active Substance: BRIVARACETAM
     Indication: Seizure
  7. PALBOCICLIB [Suspect]
     Active Substance: PALBOCICLIB
     Indication: Product used for unknown indication
     Dosage: 125MG TOTAL, CYCLIC (1X/DAY FOR 3 WEEKS)
     Route: 048
     Dates: start: 20211201, end: 20220531
  8. PALBOCICLIB [Suspect]
     Active Substance: PALBOCICLIB
     Dosage: UNK, UNK
     Route: 048
     Dates: start: 20220531

REACTIONS (4)
  - Ventriculo-peritoneal shunt [Not Recovered/Not Resolved]
  - Neoplasm progression [Not Recovered/Not Resolved]
  - Hydrocephalus [Not Recovered/Not Resolved]
  - Headache [Not Recovered/Not Resolved]

NARRATIVE: CASE EVENT DATE: 20221029
